FAERS Safety Report 5849883-9 (Version None)
Quarter: 2008Q3

REPORT INFORMATION
  Report Type: 
  Country: None (occurrence: None)
  Receive Date: 20080818
  Receipt Date: 20080818
  Transmission Date: 20090109
  Serious: Yes (Other)
  Sender: FDA-Public Use
  Company Number: None

PATIENT
  Age: 12 Year
  Sex: Female
  Weight: 41.2773 kg

DRUGS (1)
  1. VYVANSE [Suspect]
     Indication: ATTENTION DEFICIT/HYPERACTIVITY DISORDER
     Dosage: 1, 30 MG. TABLET 1 TIME IN A.M.
     Dates: start: 20080813, end: 20080814

REACTIONS (12)
  - ABASIA [None]
  - AFFECT LABILITY [None]
  - BACK PAIN [None]
  - BONE PAIN [None]
  - CONFUSIONAL STATE [None]
  - DAYDREAMING [None]
  - HALLUCINATION [None]
  - INSOMNIA [None]
  - NECK PAIN [None]
  - PAIN [None]
  - PAIN IN EXTREMITY [None]
  - SCREAMING [None]
